FAERS Safety Report 5752996-3 (Version None)
Quarter: 2008Q2

REPORT INFORMATION
  Report Type: 
  Country: None (occurrence: None)
  Receive Date: 20080527
  Receipt Date: 20080508
  Transmission Date: 20081010
  Serious: Yes (Hospitalization)
  Sender: FDA-Public Use
  Company Number: 2008AL004005

PATIENT
  Age: 78 Year
  Sex: Female
  Weight: 83.4619 kg

DRUGS (9)
  1. DIGOXIN [Suspect]
     Indication: ATRIAL FIBRILLATION
     Dosage: 0.25MG DAILY PO
     Route: 048
  2. ADVAIR DISKUS 100/50 [Concomitant]
  3. INSULIN PUMP [Concomitant]
  4. LASIX [Concomitant]
  5. K+ [Concomitant]
  6. COUMADIN [Concomitant]
  7. DILTIAZEM [Concomitant]
  8. BENICAR [Concomitant]
  9. SPIRIVA [Concomitant]

REACTIONS (4)
  - DIZZINESS [None]
  - STOMACH DISCOMFORT [None]
  - VERTIGO [None]
  - VOMITING [None]
